FAERS Safety Report 4734768-1 (Version None)
Quarter: 2005Q3

REPORT INFORMATION
  Report Type: 
  Country: None (occurrence: None)
  Receive Date: 20050804
  Receipt Date: 20050726
  Transmission Date: 20060218
  Serious: Yes (Hospitalization)
  Sender: FDA-Public Use
  Company Number: FR-GLAXOSMITHKLINE-B0388784A

PATIENT
  Age: 65 Year
  Sex: Male

DRUGS (4)
  1. ZOPHREN 8 MG [Suspect]
     Route: 042
     Dates: start: 20050502, end: 20050630
  2. DETICENE [Suspect]
     Route: 048
     Dates: start: 20050502, end: 20050630
  3. ZOLOFT [Concomitant]
     Route: 065
  4. ACETAMINOPHEN AND TRAMADOL HCL [Concomitant]
     Route: 065

REACTIONS (1)
  - CARDIOMYOPATHY [None]
